FAERS Safety Report 7455951-0 (Version None)
Quarter: 2011Q2

REPORT INFORMATION
  Report Type: 
  Country: None (occurrence: None)
  Receive Date: 20110503
  Receipt Date: 20110427
  Transmission Date: 20111010
  Serious: Yes (Hospitalization, Other)
  Sender: FDA-Public Use
  Company Number: US-RB-024418-11

PATIENT
  Age: 10 Year
  Sex: Female

DRUGS (1)
  1. MUCINEX CHILDS COUGH MINI-MELTS ORANGE [Suspect]
     Dosage: PATIENT TOOK TWO PACKETS ON 13-APR-2011 AND FOUR PACKETS ON 14-APR-2011.
     Route: 048

REACTIONS (5)
  - HALLUCINATION [None]
  - TREMOR [None]
  - FEAR [None]
  - VISUAL IMPAIRMENT [None]
  - MYDRIASIS [None]
